FAERS Safety Report 22641594 (Version 1)
Quarter: 2023Q2

REPORT INFORMATION
  Report Type: Spontaneous
  Country: JP (occurrence: JP)
  Receive Date: 20230626
  Receipt Date: 20230626
  Transmission Date: 20230722
  Serious: Yes (Other)
  Sender: FDA-Public Use
  Company Number: JP-BAYER-2023A088864

PATIENT
  Age: 79 Year
  Sex: Male

DRUGS (4)
  1. IOPROMIDE [Suspect]
     Active Substance: IOPROMIDE
     Indication: Scan with contrast
     Dosage: 80 ML, ONCE
     Route: 042
     Dates: start: 20230621, end: 20230621
  2. BROTIZOLAM [Concomitant]
     Active Substance: BROTIZOLAM
  3. CLONAZEPAM [Concomitant]
     Active Substance: CLONAZEPAM
  4. METOPROLOL [Concomitant]
     Active Substance: METOPROLOL
     Indication: Premedication
     Dates: start: 20230621, end: 20230621

REACTIONS (2)
  - Seizure [Recovering/Resolving]
  - Altered state of consciousness [Recovering/Resolving]

NARRATIVE: CASE EVENT DATE: 20230621
